FAERS Safety Report 5595522-4 (Version None)
Quarter: 2008Q1

REPORT INFORMATION
  Report Type: 
  Country: None (occurrence: None)
  Receive Date: 20080118
  Receipt Date: 20080109
  Transmission Date: 20080703
  Serious: Yes (Hospitalization)
  Sender: FDA-Public Use
  Company Number: FR-JNJFOC-20071204698

PATIENT
  Age: 75 Year
  Sex: Female

DRUGS (2)
  1. IXPRIM [Suspect]
     Route: 048
  2. IXPRIM [Suspect]
     Indication: MUSCULOSKELETAL PAIN
     Route: 048

REACTIONS (5)
  - NAUSEA [None]
  - PARAESTHESIA [None]
  - RESPIRATORY DISORDER [None]
  - TREMOR [None]
  - VOMITING [None]
